FAERS Safety Report 7584159-3 (Version None)
Quarter: 2011Q2

REPORT INFORMATION
  Report Type: 
  Country: None (occurrence: None)
  Receive Date: 20110630
  Receipt Date: 20110627
  Transmission Date: 20111010
  Serious: Yes (Hospitalization, Other)
  Sender: FDA-Public Use
  Company Number: US-PFIZER INC-2011034925

PATIENT
  Sex: Male
  Weight: 128 kg

DRUGS (14)
  1. XANAX [Suspect]
     Indication: NERVOUSNESS
  2. ZOLOFT [Suspect]
     Indication: DEPRESSION
     Dosage: 50 MG, 1X/DAY
     Route: 048
     Dates: start: 20090101
  3. TOPIRAMATE [Suspect]
     Indication: ANXIETY
  4. NEXIUM [Concomitant]
     Dosage: UNK
  5. TOPIRAMATE [Suspect]
     Indication: BIPOLAR DISORDER
     Dosage: 50 MG, 2X/DAY
     Route: 048
     Dates: start: 20090401, end: 20100901
  6. XANAX [Suspect]
     Indication: ANXIETY
  7. TOPIRAMATE [Suspect]
     Indication: NERVOUSNESS
  8. TOPAMAX [Suspect]
     Dosage: UNK
     Dates: end: 20110101
  9. XANAX [Suspect]
     Indication: POST-TRAUMATIC STRESS DISORDER
  10. ATENOLOL [Concomitant]
     Indication: HYPERTENSION
     Dosage: UNK
     Route: 048
  11. XANAX [Suspect]
     Indication: PANIC ATTACK
     Dosage: UNK, 3X/DAY
     Route: 048
  12. XANAX [Suspect]
     Indication: BIPOLAR DISORDER
     Dosage: 2 MG, UNK
     Dates: start: 20110101
  13. TOPIRAMATE [Suspect]
     Indication: POST-TRAUMATIC STRESS DISORDER
  14. PRILOSEC [Concomitant]
     Dosage: UNK

REACTIONS (19)
  - INFECTION [None]
  - SUICIDE ATTEMPT [None]
  - BLOOD CHOLESTEROL INCREASED [None]
  - PAIN [None]
  - HYPOAESTHESIA [None]
  - SPINAL COLUMN STENOSIS [None]
  - SUICIDAL IDEATION [None]
  - MENISCUS OPERATION [None]
  - BLOOD PRESSURE DECREASED [None]
  - DIZZINESS [None]
  - INTERVERTEBRAL DISC PROTRUSION [None]
  - INJURY [None]
  - NEGATIVE THOUGHTS [None]
  - DRUG INEFFECTIVE [None]
  - NEPHROLITHIASIS [None]
  - URETERIC OBSTRUCTION [None]
  - KIDNEY INFECTION [None]
  - GENERALISED OEDEMA [None]
  - HEADACHE [None]
